FAERS Safety Report 24686114 (Version 1)
Quarter: 2024Q4

REPORT INFORMATION
  Report Type: Spontaneous
  Country: US (occurrence: None)
  Receive Date: 20241127
  Receipt Date: 20241127
  Transmission Date: 20250115
  Serious: Yes (Death, Hospitalization)
  Sender: Public
  Company Number: None

PATIENT
  Age: 74 Year
  Sex: Male
  Weight: 97.5 kg

DRUGS (2)
  1. PEMBROLIZUMAB [Suspect]
     Active Substance: PEMBROLIZUMAB
     Indication: Prostate cancer
     Dosage: OTHER FREQUENCY : ONCE EVERY 21 DAYS;?
     Route: 042
     Dates: end: 20241009
  2. OLAPARIB [Suspect]
     Active Substance: OLAPARIB
     Indication: Prostate cancer
     Dosage: FREQUENCY : TWICE A DAY;?
     Route: 048
     Dates: end: 20240807

REACTIONS (15)
  - Dyspnoea [None]
  - Hypoxia [None]
  - Dyspnoea exertional [None]
  - Chest discomfort [None]
  - Orthopnoea [None]
  - Peripheral swelling [None]
  - Interstitial lung disease [None]
  - Troponin increased [None]
  - Brain natriuretic peptide increased [None]
  - Feeling abnormal [None]
  - Depressed level of consciousness [None]
  - Immune-mediated lung disease [None]
  - Oxygen saturation decreased [None]
  - Hypotension [None]
  - Sepsis [None]

NARRATIVE: CASE EVENT DATE: 20241024
